FAERS Safety Report 4614099-0 (Version None)
Quarter: 2005Q1

REPORT INFORMATION
  Report Type: 
  Country: None (occurrence: None)
  Receive Date: 20050316
  Receipt Date: 20050309
  Transmission Date: 20050727
  Serious: Yes (Disabling)
  Sender: FDA-Public Use
  Company Number: 200510174BNE

PATIENT
  Age: 85 Year
  Sex: Female

DRUGS (5)
  1. CIPROFLOXACIN [Suspect]
     Indication: URINARY TRACT INFECTION
     Dosage: 500 MG, BID, ORAL
     Route: 048
     Dates: start: 20050128, end: 20050131
  2. DIGOXIN [Concomitant]
  3. TETRACYCLINE [Concomitant]
  4. THYROXIN [Concomitant]
  5. AMIODARONE HCL [Concomitant]

REACTIONS (2)
  - DYSKINESIA [None]
  - RESTLESSNESS [None]
